FAERS Safety Report 13061288 (Version 2)
Quarter: 2017Q1

REPORT INFORMATION
  Report Type: Spontaneous
  Country: SK (occurrence: SK)
  Receive Date: 20161226
  Receipt Date: 20170222
  Transmission Date: 20170428
  Serious: Yes (Disabling)
  Sender: FDA-Public Use
  Company Number: SK-GLENMARK PHARMACEUTICALS S. R. O.-2016GMK025488

PATIENT

DRUGS (3)
  1. IBALGIN [Concomitant]
     Active Substance: IBUPROFEN
     Indication: MIGRAINE
     Dosage: 4 DF IN A MONTH
     Route: 065
  2. TOPIMARK 25 MG [Suspect]
     Active Substance: TOPIRAMATE
     Indication: MIGRAINE PROPHYLAXIS
     Dosage: 25 MG, QD
     Route: 065
  3. TOPIMARK 25 MG [Suspect]
     Active Substance: TOPIRAMATE
     Dosage: 25 MG, BID
     Route: 065

REACTIONS (12)
  - Vertigo [Recovered/Resolved]
  - Pollakiuria [Recovered/Resolved]
  - Headache [Recovered/Resolved]
  - Disturbance in attention [Recovered/Resolved]
  - Hypoacusis [Not Recovered/Not Resolved]
  - Hypoaesthesia [Recovered/Resolved]
  - Mood altered [Recovered/Resolved]
  - Tinnitus [Recovered/Resolved]
  - Anxiety [Recovered/Resolved]
  - Paraesthesia [Recovered/Resolved]
  - Dysuria [Recovered/Resolved]
  - Alopecia [Recovered/Resolved]
